FAERS Safety Report 8307373-8 (Version None)
Quarter: 2012Q2

REPORT INFORMATION
  Report Type: 
  Country: None (occurrence: None)
  Receive Date: 20120424
  Receipt Date: 20120417
  Transmission Date: 20120825
  Serious: Yes (Other)
  Sender: FDA-Public Use
  Company Number: US-INCYTE CORPORATION-2012IN000603

PATIENT
  Sex: Male

DRUGS (9)
  1. COREG [Concomitant]
  2. JAKAFI [Suspect]
     Indication: MYELOFIBROSIS
     Dosage: 20 MG, BID
     Route: 048
     Dates: start: 20120301
  3. LASIX [Concomitant]
  4. PROSCAR [Concomitant]
  5. FLOMAX [Concomitant]
  6. ALBUTEROL [Concomitant]
  7. IRON [Concomitant]
     Indication: SUPPLEMENTATION THERAPY
  8. DIGOXIN [Concomitant]
  9. ALLOPURINOL [Concomitant]

REACTIONS (3)
  - NEOPLASM MALIGNANT [None]
  - POST PROCEDURAL INFECTION [None]
  - MALAISE [None]
